FAERS Safety Report 10220951 (Version 1)
Quarter: 2014Q2

REPORT INFORMATION
  Report Type: Report from Study
  Country: BR (occurrence: BR)
  Receive Date: 20140606
  Receipt Date: 20140606
  Transmission Date: 20141212
  Serious: Yes (Other)
  Sender: FDA-Public Use
  Company Number: BR-ROCHE-1412261

PATIENT
  Age: 68 Year
  Sex: Female

DRUGS (3)
  1. INTERFERON ALFA-2A [Suspect]
     Indication: HEPATITIS C
     Route: 065
     Dates: start: 201401
  2. RIBAVIRIN [Suspect]
     Indication: HEPATITIS C
     Dosage: 2 TABLETS IN THE MORNING AND 2 IN THE AFTERNOON
     Route: 065
     Dates: start: 201401
  3. PEGINTRON [Suspect]
     Indication: HEPATITIS C
     Route: 065
     Dates: start: 20140530

REACTIONS (3)
  - Syncope [Unknown]
  - Tremor [Unknown]
  - Back pain [Unknown]
